FAERS Safety Report 9586871 (Version 3)
Quarter: 2013Q4

REPORT INFORMATION
  Report Type: Spontaneous
  Country: US (occurrence: US)
  Receive Date: 20131003
  Receipt Date: 20131010
  Transmission Date: 20140711
  Serious: Yes (Other)
  Sender: FDA-Public Use
  Company Number: US-ASTRAZENECA-2013SE64184

PATIENT
  Age: 73 Year
  Sex: Female
  Weight: 49.9 kg

DRUGS (6)
  1. SYMBICORT [Suspect]
     Indication: CHRONIC OBSTRUCTIVE PULMONARY DISEASE
     Dosage: 160/4.5 MCG, 1 PUFF, TWO TIMES A DAY
     Route: 055
  2. SYMBICORT [Suspect]
     Indication: CHRONIC OBSTRUCTIVE PULMONARY DISEASE
     Dosage: 160/4.5 MCG, THREE TIMES A DAY
     Route: 055
  3. SPIRIVA [Concomitant]
     Indication: CHRONIC OBSTRUCTIVE PULMONARY DISEASE
     Dosage: NOT SPECIFIED DAILY
  4. PROAIR [Concomitant]
     Indication: CHRONIC OBSTRUCTIVE PULMONARY DISEASE
     Dosage: NOT SPECIFIED PRN
  5. LEVALBUTEROL HC1 FOR NEBULIZER [Concomitant]
     Indication: CHRONIC OBSTRUCTIVE PULMONARY DISEASE
     Dosage: 1.25MG/3 UNK
  6. XOPENEX [Concomitant]
     Indication: CHRONIC OBSTRUCTIVE PULMONARY DISEASE
     Dosage: 1.25 MG/3, UNKNOWN

REACTIONS (16)
  - Invasive ductal breast carcinoma [Unknown]
  - Cerebrovascular accident [Unknown]
  - Cor pulmonale [Unknown]
  - Respiratory arrest [Unknown]
  - Dyspnoea [Unknown]
  - Malaise [Unknown]
  - Condition aggravated [Unknown]
  - Pulmonary congestion [Unknown]
  - Dyspnoea [Unknown]
  - Bronchitis chronic [Unknown]
  - Emphysema [Unknown]
  - Hypertension [Unknown]
  - Cough [Unknown]
  - Tremor [Unknown]
  - Incorrect dose administered [Unknown]
  - Drug dose omission [Unknown]
